FAERS Safety Report 4805513-6 (Version None)
Quarter: 2005Q4

REPORT INFORMATION
  Report Type: 
  Country: None (occurrence: None)
  Receive Date: 20051018
  Receipt Date: 20051007
  Transmission Date: 20060501
  Serious: Yes (Other)
  Sender: FDA-Public Use
  Company Number: S05-USA-04588-01

PATIENT
  Age: 49 Year
  Sex: Female
  Weight: 70.3075 kg

DRUGS (2)
  1. LEXAPRO [Suspect]
     Indication: DEPRESSION
     Dosage: 20 MG QD PO
     Route: 048
     Dates: start: 20040201, end: 20050401
  2. LEXAPRO [Suspect]
     Indication: DEPRESSION
     Dosage: 10 MG QD PO
     Route: 048
     Dates: start: 20031201, end: 20040201

REACTIONS (6)
  - ABNORMAL BEHAVIOUR [None]
  - PARAESTHESIA [None]
  - SELF-INJURIOUS IDEATION [None]
  - SUICIDAL IDEATION [None]
  - VERTIGO [None]
  - WEIGHT DECREASED [None]
